FAERS Safety Report 5869061-7 (Version None)
Quarter: 2008Q3

REPORT INFORMATION
  Report Type: 
  Country: None (occurrence: None)
  Receive Date: 20080903
  Receipt Date: 20080829
  Transmission Date: 20090109
  Serious: Yes (Other)
  Sender: FDA-Public Use
  Company Number: B0534825A

PATIENT
  Age: 49 Year
  Sex: Male
  Weight: 80 kg

DRUGS (2)
  1. LAMOTRIGINE [Suspect]
     Route: 048
     Dates: start: 20080501, end: 20080701
  2. ARIPIPRAZOLE [Suspect]
     Dosage: 15MG PER DAY
     Route: 048
     Dates: start: 20080725, end: 20080805

REACTIONS (4)
  - DYSKINESIA [None]
  - GLOSSODYNIA [None]
  - LIVER FUNCTION TEST ABNORMAL [None]
  - SWOLLEN TONGUE [None]
